FAERS Safety Report 4690966-7 (Version None)
Quarter: 2005Q2

REPORT INFORMATION
  Report Type: 
  Country: None (occurrence: None)
  Receive Date: 20050610
  Receipt Date: 20050530
  Transmission Date: 20051028
  Serious: Yes (Other)
  Sender: FDA-Public Use
  Company Number: 2005080554

PATIENT
  Sex: Female
  Weight: 49.8957 kg

DRUGS (3)
  1. UNISOM [Suspect]
     Indication: INTENTIONAL MISUSE
     Dosage: 16 TABLETS ONCE, ORAL
     Route: 048
     Dates: start: 20050530, end: 20050530
  2. UNISOM [Suspect]
     Indication: OVERDOSE
     Dosage: 16 TABLETS ONCE, ORAL
     Route: 048
     Dates: start: 20050530, end: 20050530
  3. ACETAMINOPHEN [Concomitant]

REACTIONS (3)
  - INTENTIONAL MISUSE [None]
  - OVERDOSE [None]
  - SOMNOLENCE [None]
